FAERS Safety Report 7207523-0 (Version None)
Quarter: 2011Q1

REPORT INFORMATION
  Report Type: 
  Country: None (occurrence: None)
  Receive Date: 20110103
  Receipt Date: 20101228
  Transmission Date: 20110831
  Serious: Yes (Other)
  Sender: FDA-Public Use
  Company Number: GB-TEVA-260165ISR

PATIENT
  Age: 72 Year
  Sex: Female

DRUGS (2)
  1. RAMIPRIL [Suspect]
     Indication: HYPERTENSION
  2. FUROSEMIDE [Suspect]
     Indication: HYPERTENSION

REACTIONS (2)
  - MUSCLE TWITCHING [None]
  - TRANSIENT ISCHAEMIC ATTACK [None]
